FAERS Safety Report 20497025 (Version 1)
Quarter: 2022Q1

REPORT INFORMATION
  Report Type: Spontaneous
  Country: PL (occurrence: PL)
  Receive Date: 20220221
  Receipt Date: 20220221
  Transmission Date: 20220423
  Serious: Yes (Hospitalization, Other)
  Sender: FDA-Public Use
  Company Number: PL-002147023-NVSC2021PL267813

PATIENT
  Age: 71 Year
  Sex: Male

DRUGS (45)
  1. LEVOTHYROXINE [Suspect]
     Active Substance: LEVOTHYROXINE
     Indication: Product used for unknown indication
     Dosage: UNK, QD (N50)
     Route: 065
  2. SPIRONOLACTONE [Suspect]
     Active Substance: SPIRONOLACTONE
     Indication: Product used for unknown indication
     Dosage: 100 MG, QD
     Dates: start: 201804
  3. SPIRONOLACTONE [Suspect]
     Active Substance: SPIRONOLACTONE
     Dosage: 100 UNK
     Route: 065
     Dates: start: 201905
  4. SPIRONOLACTONE [Suspect]
     Active Substance: SPIRONOLACTONE
     Dosage: 100 UNK
     Route: 065
     Dates: start: 202101
  5. SPIRONOLACTONE [Suspect]
     Active Substance: SPIRONOLACTONE
     Dosage: 50 MG
     Route: 065
     Dates: start: 202103
  6. SACUBITRIL\VALSARTAN [Suspect]
     Active Substance: SACUBITRIL\VALSARTAN
     Indication: Cardiac failure
     Dosage: 100 MG, QD
     Route: 065
     Dates: start: 201804
  7. SACUBITRIL\VALSARTAN [Suspect]
     Active Substance: SACUBITRIL\VALSARTAN
     Dosage: 100 MG
     Route: 065
     Dates: start: 201905
  8. SACUBITRIL\VALSARTAN [Suspect]
     Active Substance: SACUBITRIL\VALSARTAN
     Dosage: 200 UNK
     Route: 065
     Dates: start: 202101
  9. SACUBITRIL\VALSARTAN [Suspect]
     Active Substance: SACUBITRIL\VALSARTAN
     Dosage: 200 MG
     Route: 065
     Dates: start: 202103
  10. SACUBITRIL\VALSARTAN [Suspect]
     Active Substance: SACUBITRIL\VALSARTAN
     Dosage: -JUL-2021
     Route: 065
  11. SACUBITRIL\VALSARTAN [Suspect]
     Active Substance: SACUBITRIL\VALSARTAN
     Dosage: -SEP-2021
     Route: 065
  12. SACUBITRIL\VALSARTAN [Suspect]
     Active Substance: SACUBITRIL\VALSARTAN
     Dosage: 0.5 DF, BID (49MG/51MG)
     Route: 065
  13. DIGOXIN [Suspect]
     Active Substance: DIGOXIN
     Indication: Product used for unknown indication
     Dosage: 0.1 MG, QD
     Route: 065
  14. CARVEDILOL [Suspect]
     Active Substance: CARVEDILOL
     Indication: Product used for unknown indication
     Dosage: 6.25 MG, QD
     Route: 065
     Dates: start: 201804
  15. CARVEDILOL [Suspect]
     Active Substance: CARVEDILOL
     Dosage: 6.26 UNK
     Route: 065
     Dates: start: 201905
  16. CARVEDILOL [Suspect]
     Active Substance: CARVEDILOL
     Dosage: 13 MG, QD
     Route: 065
     Dates: start: 202101
  17. CARVEDILOL [Suspect]
     Active Substance: CARVEDILOL
     Dosage: 13 MG, QD
     Route: 065
     Dates: start: 202103
  18. CARVEDILOL [Suspect]
     Active Substance: CARVEDILOL
     Dosage: -JUL-2021, 13 MG, QD
     Route: 065
  19. CARVEDILOL [Suspect]
     Active Substance: CARVEDILOL
     Dosage: -SEP-2021, 13 MG, QD
     Route: 065
  20. CARVEDILOL [Suspect]
     Active Substance: CARVEDILOL
     Dosage: 6.25 MG, BID
  21. ATORVASTATIN [Suspect]
     Active Substance: ATORVASTATIN
     Indication: Product used for unknown indication
     Dosage: 10 MG, QD
     Route: 065
  22. APIXABAN [Suspect]
     Active Substance: APIXABAN
     Indication: Product used for unknown indication
     Dosage: 5 MG, BID
  23. SILDENAFIL [Suspect]
     Active Substance: SILDENAFIL
     Indication: Product used for unknown indication
     Dosage: 50 MG
     Route: 065
     Dates: start: 201804
  24. SILDENAFIL [Suspect]
     Active Substance: SILDENAFIL
     Dosage: 50 UNK
     Route: 065
     Dates: start: 201905
  25. SILDENAFIL [Suspect]
     Active Substance: SILDENAFIL
     Dosage: 50 UNK
     Route: 065
     Dates: start: 202101
  26. SILDENAFIL [Suspect]
     Active Substance: SILDENAFIL
     Dosage: 50 UNK
     Route: 065
     Dates: start: 202103
  27. HYDROCHLOROTHIAZIDE [Suspect]
     Active Substance: HYDROCHLOROTHIAZIDE
     Indication: Product used for unknown indication
     Dosage: 25 MG, QD
     Route: 065
     Dates: start: 201804
  28. HYDROCHLOROTHIAZIDE [Suspect]
     Active Substance: HYDROCHLOROTHIAZIDE
     Dosage: 25 UNK
     Route: 065
     Dates: start: 201905
  29. HYDROCHLOROTHIAZIDE [Suspect]
     Active Substance: HYDROCHLOROTHIAZIDE
     Dosage: 25 UNK
     Route: 065
     Dates: start: 202101
  30. TORSEMIDE [Suspect]
     Active Substance: TORSEMIDE
     Indication: Product used for unknown indication
     Dosage: -JUL-2021, 5 MG, QD
     Route: 065
  31. TORSEMIDE [Suspect]
     Active Substance: TORSEMIDE
     Dosage: -SEP-2021, 10 UNK
     Route: 065
  32. TORSEMIDE [Suspect]
     Active Substance: TORSEMIDE
     Dosage: 10 MG, QD (1 TABLET IN THE EVENING)
  33. FUROSEMIDE [Suspect]
     Active Substance: FUROSEMIDE
     Indication: Product used for unknown indication
     Dosage: 120 MG, QD
     Route: 065
     Dates: start: 201804
  34. FUROSEMIDE [Suspect]
     Active Substance: FUROSEMIDE
     Dosage: 200 UNK
     Route: 065
     Dates: start: 201905
  35. FUROSEMIDE [Suspect]
     Active Substance: FUROSEMIDE
     Dosage: 160 UNK
     Route: 065
     Dates: start: 202101
  36. FUROSEMIDE [Suspect]
     Active Substance: FUROSEMIDE
     Dosage: 80 UNK
     Route: 065
     Dates: start: 202103
  37. FUROSEMIDE [Suspect]
     Active Substance: FUROSEMIDE
     Dosage: -JUL-2021, 40 UNK
     Route: 065
  38. FUROSEMIDE [Suspect]
     Active Substance: FUROSEMIDE
     Dosage: -SEP-2021, 40 UNK
     Route: 065
  39. FUROSEMIDE [Suspect]
     Active Substance: FUROSEMIDE
     Dosage: 40 MG, QD (1 TABLET IN THE MORNING)
     Route: 065
  40. DAPAGLIFLOZIN [Suspect]
     Active Substance: DAPAGLIFLOZIN
     Indication: Product used for unknown indication
     Dosage: -JUL-2021, 10 MG, QD
     Route: 065
  41. DAPAGLIFLOZIN [Suspect]
     Active Substance: DAPAGLIFLOZIN
     Dosage: -SEP-2021, 10 MG, QD
     Route: 065
  42. DAPAGLIFLOZIN [Suspect]
     Active Substance: DAPAGLIFLOZIN
     Dosage: -SEP-2021, 10 UNK
     Route: 065
  43. DAPAGLIFLOZIN [Suspect]
     Active Substance: DAPAGLIFLOZIN
     Dosage: 10 MG, QD
     Route: 065
  44. ALLOPURINOL [Suspect]
     Active Substance: ALLOPURINOL
     Indication: Product used for unknown indication
     Dosage: UNK
     Route: 065
  45. EMPAGLIFLOZIN [Suspect]
     Active Substance: EMPAGLIFLOZIN
     Indication: Product used for unknown indication
     Dosage: 10 MG, QD
     Route: 065
     Dates: start: 201804

REACTIONS (7)
  - Acute kidney injury [Unknown]
  - Glomerular filtration rate abnormal [Unknown]
  - Congestive cardiomyopathy [Unknown]
  - Cardiac failure [Unknown]
  - N-terminal prohormone brain natriuretic peptide increased [Unknown]
  - Lung disorder [Unknown]
  - Wrong technique in product usage process [Unknown]

NARRATIVE: CASE EVENT DATE: 20210301
